FAERS Safety Report 19990238 (Version 1)
Quarter: 2021Q4

REPORT INFORMATION
  Report Type: Spontaneous
  Country: US (occurrence: US)
  Receive Date: 20211022
  Receipt Date: 20211022
  Transmission Date: 20220303
  Serious: Yes (Other)
  Sender: FDA-Public Use
  Company Number: None

PATIENT
  Age: 29 Year
  Sex: Male

DRUGS (1)
  1. INSULIN LISPRO [Suspect]
     Active Substance: INSULIN LISPRO
     Indication: Type 1 diabetes mellitus
     Dosage: ?          OTHER STRENGTH:100U/ML;OTHER DOSE:95U;
     Route: 058
     Dates: start: 20210706, end: 20210716

REACTIONS (5)
  - Blood glucose increased [None]
  - Blood glucose fluctuation [None]
  - Blood glucose decreased [None]
  - Feeling abnormal [None]
  - Manufacturing issue [None]

NARRATIVE: CASE EVENT DATE: 20210706
